FAERS Safety Report 9550755 (Version 1)
Quarter: 2013Q3

REPORT INFORMATION
  Report Type: Spontaneous
  Country: US (occurrence: US)
  Receive Date: 20130924
  Receipt Date: 20130924
  Transmission Date: 20140515
  Serious: No
  Sender: FDA-Public Use
  Company Number: US-SANOFI-AVENTIS-2013SA023130

PATIENT
  Age: 41 Year
  Sex: Male
  Weight: 70.31 kg

DRUGS (5)
  1. AUBAGIO [Suspect]
     Indication: MULTIPLE SCLEROSIS
     Route: 048
     Dates: start: 201302, end: 20130630
  2. VITAMIN B [Concomitant]
     Indication: MULTIPLE SCLEROSIS
     Dates: start: 200303
  3. VITAMIN C [Concomitant]
     Indication: MULTIPLE SCLEROSIS
     Dates: start: 200303
  4. VITAMIN E [Concomitant]
     Indication: MULTIPLE SCLEROSIS
     Dosage: DOSE:800 UNIT(S)
     Dates: start: 200303
  5. MULTIVITAMINS [Concomitant]

REACTIONS (5)
  - Gait disturbance [Not Recovered/Not Resolved]
  - Balance disorder [Not Recovered/Not Resolved]
  - Motor dysfunction [Not Recovered/Not Resolved]
  - Extra dose administered [Unknown]
  - Drug ineffective [Unknown]
